FAERS Safety Report 9954174 (Version 3)
Quarter: 2014Q2

REPORT INFORMATION
  Report Type: Spontaneous
  Country: IT (occurrence: IT)
  Receive Date: 20140304
  Receipt Date: 20140425
  Transmission Date: 20141212
  Serious: Yes (Hospitalization, Other)
  Sender: FDA-Public Use
  Company Number: IT-PFIZER INC-2014062581

PATIENT
  Age: 68 Year
  Sex: Female

DRUGS (7)
  1. SOLU-MEDROL [Suspect]
     Indication: ACUTE DISSEMINATED ENCEPHALOMYELITIS
     Dosage: 1 G, DAILY
     Route: 042
     Dates: start: 20131218, end: 20131220
  2. LANSOPRAZOLE [Concomitant]
     Dosage: UNK
  3. BENEXOL [Concomitant]
     Dosage: UNK
  4. FOLINA [Concomitant]
     Dosage: UNK
  5. KALI-RETARD [Concomitant]
     Dosage: UNK
  6. SEREUPIN [Concomitant]
     Dosage: UNK
  7. NATECAL D [Concomitant]
     Dosage: UNK

REACTIONS (1)
  - Drug-induced liver injury [Recovering/Resolving]
